FAERS Safety Report 19040577 (Version 1)
Quarter: 2021Q1

REPORT INFORMATION
  Report Type: Spontaneous
  Country: US (occurrence: US)
  Receive Date: 20210322
  Receipt Date: 20210322
  Transmission Date: 20210420
  Serious: Yes (Hospitalization)
  Sender: FDA-Public Use
  Company Number: US-GW PHARMA-202103USGW01160

PATIENT

DRUGS (1)
  1. EPIDIOLEX [Suspect]
     Active Substance: CANNABIDIOL
     Indication: MYOCLONUS
     Dosage: 150 MILLIGRAM, BID
     Dates: start: 202011

REACTIONS (2)
  - Seizure [Unknown]
  - Product use in unapproved indication [Unknown]
